FAERS Safety Report 5399980-X (Version None)
Quarter: 2007Q3

REPORT INFORMATION
  Report Type: 
  Country: None (occurrence: None)
  Receive Date: 20070726
  Receipt Date: 20070726
  Transmission Date: 20080115
  Serious: Yes (Other)
  Sender: FDA-Public Use
  Company Number: None

PATIENT
  Age: 33 Year
  Sex: Male
  Weight: 74.3899 kg

DRUGS (3)
  1. LITHIUM CARBONATE [Suspect]
     Indication: MANIA
     Dosage: 1200 MG/DAY
     Dates: start: 20070321, end: 20070509
  2. CLOZAPINE [Suspect]
     Indication: SCHIZOPHRENIA
     Dosage: TITRATING UPWARD
     Dates: start: 20070406
  3. CLONAZEPAM [Concomitant]

REACTIONS (2)
  - EOSINOPHILIA [None]
  - NEUTROPHIL COUNT INCREASED [None]
